FAERS Safety Report 5770730-8 (Version None)
Quarter: 2008Q2

REPORT INFORMATION
  Report Type: 
  Country: None (occurrence: None)
  Receive Date: 20080613
  Receipt Date: 20080512
  Transmission Date: 20081010
  Serious: No
  Sender: FDA-Public Use
  Company Number: US-ABBOTT-08P-163-0451537-00

PATIENT
  Sex: Female
  Weight: 94.432 kg

DRUGS (8)
  1. HUMIRA [Suspect]
     Indication: RHEUMATOID ARTHRITIS
     Route: 058
     Dates: start: 20060101, end: 20071101
  2. HUMIRA [Suspect]
     Route: 058
     Dates: start: 20071101
  3. TRAMADOL HCL [Concomitant]
     Indication: ARTHRALGIA
     Dosage: 37.5MG / 325MG
     Route: 048
     Dates: start: 20080101
  4. MELOXICAM [Concomitant]
     Indication: ARTHRALGIA
     Route: 048
     Dates: start: 20050101
  5. ESOMEPRAZOLE MAGNESIUM [Concomitant]
     Indication: DYSPEPSIA
     Route: 048
     Dates: start: 20080101
  6. METHOTREXATE [Concomitant]
     Indication: DRUG USE FOR UNKNOWN INDICATION
     Route: 048
     Dates: start: 20050101
  7. FOLIC ACID [Concomitant]
     Indication: DRUG USE FOR UNKNOWN INDICATION
     Route: 048
     Dates: start: 20050101
  8. OVER 50 VITAMINS [Concomitant]
     Indication: VITAMIN SUPPLEMENTATION
     Route: 048
     Dates: start: 20070101

REACTIONS (3)
  - ALOPECIA [None]
  - DIZZINESS [None]
  - DRUG EFFECT DECREASED [None]
